FAERS Safety Report 8075461-X (Version None)
Quarter: 2012Q1

REPORT INFORMATION
  Report Type: 
  Country: None (occurrence: None)
  Receive Date: 20120127
  Receipt Date: 20120124
  Transmission Date: 20120608
  Serious: Yes (Other)
  Sender: FDA-Public Use
  Company Number: US-AMGEN-USASP2012004979

PATIENT
  Sex: Female

DRUGS (9)
  1. GINGER                             /01646602/ [Concomitant]
  2. VITAMIN D [Concomitant]
     Dosage: UNK
  3. ANTIBIOTICS [Concomitant]
     Indication: PROPHYLAXIS
     Dosage: UNK
     Dates: start: 20111101
  4. ANALGESICS [Concomitant]
     Indication: PROPHYLAXIS
     Dosage: UNK
     Dates: start: 20111101
  5. VITAMIN B-12 [Concomitant]
     Dosage: UNK
  6. ANTIEMETICS AND ANTINAUSEANTS [Concomitant]
     Indication: PROPHYLAXIS
     Dosage: UNK
     Dates: start: 20111101
  7. NEULASTA [Suspect]
     Indication: BREAST CANCER
     Dosage: 6 MG, Q3WK
     Dates: start: 20111101
  8. ANTINEOPLASTIC AGENTS [Concomitant]
     Indication: BREAST CANCER
  9. BOOST [Concomitant]
     Dosage: UNK

REACTIONS (11)
  - SWELLING FACE [None]
  - ARTHRALGIA [None]
  - MALAISE [None]
  - DRUG INTERACTION [None]
  - PLATELET COUNT ABNORMAL [None]
  - BLOOD TEST ABNORMAL [None]
  - CONSTIPATION [None]
  - BLISTER [None]
  - NAUSEA [None]
  - INJECTION SITE PAIN [None]
  - GASTROINTESTINAL HYPOMOTILITY [None]
